FAERS Safety Report 8776734 (Version 3)
Quarter: 2012Q4

REPORT INFORMATION
  Report Type: 
  Country: JP (occurrence: JP)
  Receive Date: 20120910
  Receipt Date: 20120925
  Transmission Date: 20130627
  Serious: Yes (Other)
  Sender: FDA-Public Use
  Company Number: JP-JNJFOC-20120901029

PATIENT
  Age: 23 Year
  Sex: Female
  Weight: 48 kg

DRUGS (5)
  1. ITRIZOLE [Suspect]
     Indication: ASPERGILLUS TEST POSITIVE
     Route: 048
     Dates: start: 200908, end: 200908
  2. ITRIZOLE [Suspect]
     Indication: BLOOD BETA-D-GLUCAN INCREASED
     Route: 048
     Dates: start: 200908, end: 200908
  3. PREDNISOLONE [Concomitant]
     Route: 065
  4. ZONISAMIDE [Concomitant]
     Route: 048
  5. MIDAZOLAM [Concomitant]
     Route: 030

REACTIONS (2)
  - Drug-induced liver injury [Recovered/Resolved]
  - Drug eruption [Recovered/Resolved]
